FAERS Safety Report 6466701-9 (Version None)
Quarter: 2009Q4

REPORT INFORMATION
  Report Type: 
  Country: None (occurrence: None)
  Receive Date: 20091202
  Receipt Date: 20091124
  Transmission Date: 20100525
  Serious: Yes (Other)
  Sender: FDA-Public Use
  Company Number: US-AMGEN-QUU376410

PATIENT
  Sex: Female

DRUGS (1)
  1. ENBREL [Suspect]
     Indication: PSORIATIC ARTHROPATHY
     Route: 058
     Dates: start: 20050101

REACTIONS (5)
  - DYSPNOEA [None]
  - EYE INFLAMMATION [None]
  - PHOTOPHOBIA [None]
  - PREMATURE LABOUR [None]
  - ULCERATIVE KERATITIS [None]
